FAERS Safety Report 13343957 (Version 1)
Quarter: 2017Q1

REPORT INFORMATION
  Report Type: Spontaneous
  Country: SE (occurrence: SE)
  Receive Date: 20170316
  Receipt Date: 20170316
  Transmission Date: 20170428
  Serious: Yes (Other)
  Sender: FDA-Public Use
  Company Number: SE-009507513-1703SWE005158

PATIENT
  Age: 24 Year
  Sex: Female

DRUGS (1)
  1. NUVARING [Suspect]
     Active Substance: ETHINYL ESTRADIOL\ETONOGESTREL
     Dosage: UNK DF, UNK
     Route: 067
     Dates: start: 20150206

REACTIONS (10)
  - Dysmenorrhoea [Unknown]
  - Cytology abnormal [Unknown]
  - Abdominal pain lower [Unknown]
  - Metrorrhagia [Unknown]
  - Pain [Unknown]
  - Menorrhagia [Unknown]
  - Cervix carcinoma [Unknown]
  - Cervical friability [Unknown]
  - Vaginal haemorrhage [Unknown]
  - Ovarian cancer [Unknown]

NARRATIVE: CASE EVENT DATE: 2015
